FAERS Safety Report 5092540-X (Version None)
Quarter: 2006Q3

REPORT INFORMATION
  Report Type: 
  Country: None (occurrence: None)
  Receive Date: 20060830
  Receipt Date: 20060818
  Transmission Date: 20061208
  Serious: Yes (Hospitalization)
  Sender: FDA-Public Use
  Company Number: US-JNJFOC-20060804750

PATIENT
  Sex: Female
  Weight: 58.97 kg

DRUGS (3)
  1. DURAGESIC-100 [Suspect]
     Indication: NECK PAIN
     Route: 062
  2. XANAX [Concomitant]
     Indication: NERVOUSNESS
     Dosage: TAKEN 1 TO 3 TIMES DAILY
     Route: 048
  3. PROZAC [Concomitant]
     Route: 048

REACTIONS (1)
  - MALAISE [None]
